FAERS Safety Report 15987172 (Version 2)
Quarter: 2019Q2

REPORT INFORMATION
  Report Type: Spontaneous
  Country: US (occurrence: US)
  Receive Date: 20190220
  Receipt Date: 20190509
  Transmission Date: 20190711
  Serious: Yes (Congenital Anomaly, Other)
  Sender: FDA-Public Use
  Company Number: PHEH2019US007914

PATIENT
  Sex: Male

DRUGS (1)
  1. ZOFRAN [Suspect]
     Active Substance: ONDANSETRON HYDROCHLORIDE
     Indication: FOETAL EXPOSURE DURING PREGNANCY
     Route: 064

REACTIONS (12)
  - Pyrexia [Unknown]
  - Diarrhoea [Unknown]
  - Tonsillitis [Unknown]
  - Laryngitis [Unknown]
  - Cough [Unknown]
  - Dyspepsia [Unknown]
  - Congenital supraventricular tachycardia [Unknown]
  - Bronchitis [Unknown]
  - Chest pain [Unknown]
  - Injury [Unknown]
  - Viral pharyngitis [Unknown]
  - Foetal exposure during pregnancy [Unknown]
